FAERS Safety Report 4881280-5 (Version None)
Quarter: 2005Q4

REPORT INFORMATION
  Report Type: 
  Country: None (occurrence: None)
  Receive Date: 20051212
  Receipt Date: 20051011
  Transmission Date: 20060501
  Serious: Yes (Hospitalization)
  Sender: FDA-Public Use
  Company Number: 2005-02127

PATIENT
  Age: 58 Year
  Sex: Male
  Weight: 98 kg

DRUGS (2)
  1. VELCADE [Suspect]
     Indication: MULTIPLE MYELOMA
     Dosage: 1.30 MG/M2, 2/WEEK, INTRAVENOUS
     Route: 042
     Dates: start: 20050531
  2. DOXIL [Suspect]
     Indication: MULTIPLE MYELOMA
     Dosage: 65.00 MG, Q3WEEKS, INTRAVENOUS
     Route: 042
     Dates: start: 20050531

REACTIONS (1)
  - SYNCOPE [None]
